FAERS Safety Report 4735872-4 (Version None)
Quarter: 2005Q3

REPORT INFORMATION
  Report Type: 
  Country: None (occurrence: None)
  Receive Date: 20050805
  Receipt Date: 20050729
  Transmission Date: 20060218
  Serious: Yes (Death, Hospitalization)
  Sender: FDA-Public Use
  Company Number: US-JNJFOC-20050401597

PATIENT
  Sex: Female
  Weight: 90.72 kg

DRUGS (3)
  1. DOXIL [Suspect]
     Indication: UTERINE CANCER
     Route: 042
  2. DOXIL [Suspect]
     Indication: OVARIAN CANCER
     Route: 042
  3. MORPHINE [Concomitant]
     Indication: PAIN

REACTIONS (4)
  - BURNING SENSATION [None]
  - CARDIAC FAILURE [None]
  - INFUSION RELATED REACTION [None]
  - THROMBOSIS [None]
